FAERS Safety Report 11797277 (Version 1)
Quarter: 2015Q4

REPORT INFORMATION
  Report Type: Spontaneous
  Country: BR (occurrence: BR)
  Receive Date: 20151203
  Receipt Date: 20151203
  Transmission Date: 20160305
  Serious: Yes (Death, Other)
  Sender: FDA-Public Use
  Company Number: BR-PFIZER INC-2015413779

PATIENT
  Sex: Male

DRUGS (2)
  1. UPLYSO [Suspect]
     Active Substance: TALIGLUCERASE ALFA
     Dosage: 60 IU/KG, UNK
     Dates: start: 20151124
  2. UPLYSO [Suspect]
     Active Substance: TALIGLUCERASE ALFA
     Indication: GAUCHER^S DISEASE
     Dosage: UNK

REACTIONS (3)
  - Hepatic cirrhosis [Unknown]
  - Abdominal pain [Fatal]
  - Loss of consciousness [Fatal]
